FAERS Safety Report 9642102 (Version 2)
Quarter: 2014Q1

REPORT INFORMATION
  Report Type: Report from Study
  Country: CN (occurrence: CN)
  Receive Date: 20131023
  Receipt Date: 20140103
  Transmission Date: 20141002
  Serious: Yes (Hospitalization)
  Sender: FDA-Public Use
  Company Number: CN-ROCHE-1288752

PATIENT
  Age: 53 Year
  Sex: Female
  Weight: 53 kg

DRUGS (5)
  1. TRASTUZUMAB [Suspect]
     Indication: HER-2 POSITIVE BREAST CANCER
     Dosage: LOADING DOSE
     Route: 042
     Dates: start: 20130917, end: 20131008
  2. TRASTUZUMAB [Suspect]
     Dosage: MAINTENANCE DOSE (6MG/KG AS PER PROTOCOL)
     Route: 042
     Dates: start: 20131015
  3. DOCETAXEL [Suspect]
     Indication: HER-2 POSITIVE BREAST CANCER
     Route: 042
     Dates: start: 20130917, end: 20131008
  4. DOCETAXEL [Suspect]
     Route: 042
     Dates: start: 20131015
  5. PERTUZUMAB [Suspect]
     Indication: HER-2 POSITIVE BREAST CANCER
     Dosage: DATE OF LAST DOSE PRIOR TO SAE: 10/OCT/2013
     Route: 042
     Dates: start: 20130917

REACTIONS (1)
  - Hepatic function abnormal [Not Recovered/Not Resolved]
